FAERS Safety Report 24153672 (Version 2)
Quarter: 2024Q4

REPORT INFORMATION
  Report Type: Spontaneous
  Country: JP (occurrence: JP)
  Receive Date: 20240730
  Receipt Date: 20241225
  Transmission Date: 20250115
  Serious: Yes (Hospitalization, Other)
  Sender: ALEXION PHARMACEUTICALS
  Company Number: 2024A022085

PATIENT
  Age: 78 Year
  Weight: 64 kg

DRUGS (58)
  1. IMJUDO [Suspect]
     Active Substance: TREMELIMUMAB\TREMELIMUMAB-ACTL
     Indication: Non-small cell lung cancer
     Dosage: DOSE UNKNOWN, FREQUENCY: Q4WK
  2. IMJUDO [Suspect]
     Active Substance: TREMELIMUMAB\TREMELIMUMAB-ACTL
     Dosage: DOSE UNKNOWN, FREQUENCY: Q4WK
     Route: 041
  3. IMJUDO [Suspect]
     Active Substance: TREMELIMUMAB\TREMELIMUMAB-ACTL
     Dosage: DOSE UNKNOWN, FREQUENCY: Q4WK
  4. IMJUDO [Suspect]
     Active Substance: TREMELIMUMAB\TREMELIMUMAB-ACTL
     Dosage: DOSE UNKNOWN, FREQUENCY: Q4WK
     Route: 041
  5. IMFINZI [Suspect]
     Active Substance: DURVALUMAB
     Indication: Non-small cell lung cancer
     Dosage: 1500 MILLIGRAM, UNK
     Route: 042
  6. IMFINZI [Suspect]
     Active Substance: DURVALUMAB
     Dosage: 1500 MILLIGRAM, UNK
  7. IMFINZI [Suspect]
     Active Substance: DURVALUMAB
     Dosage: 1500 MILLIGRAM, UNK
     Route: 042
  8. IMFINZI [Suspect]
     Active Substance: DURVALUMAB
     Dosage: 1500 MILLIGRAM, UNK
  9. IMFINZI [Suspect]
     Active Substance: DURVALUMAB
     Dosage: 1500 MILLIGRAM, UNK, FREQUENCY: Q4WK
  10. IMFINZI [Suspect]
     Active Substance: DURVALUMAB
     Dosage: 1500 MILLIGRAM, UNK, FREQUENCY: Q4WK
     Route: 042
  11. IMFINZI [Suspect]
     Active Substance: DURVALUMAB
     Dosage: 1500 MILLIGRAM, UNK, FREQUENCY: Q4WK
     Route: 042
  12. IMFINZI [Suspect]
     Active Substance: DURVALUMAB
     Dosage: 1500 MILLIGRAM, UNK, FREQUENCY: Q4WK
  13. IMFINZI [Suspect]
     Active Substance: DURVALUMAB
     Dosage: 620 MILLIGRAM, Q2W
  14. IMFINZI [Suspect]
     Active Substance: DURVALUMAB
     Dosage: 620 MILLIGRAM, Q2W
     Route: 041
  15. IMFINZI [Suspect]
     Active Substance: DURVALUMAB
     Dosage: 620 MILLIGRAM, Q2W
     Route: 041
  16. IMFINZI [Suspect]
     Active Substance: DURVALUMAB
     Dosage: 620 MILLIGRAM, Q2W
  17. CARBOPLATIN [Suspect]
     Active Substance: CARBOPLATIN
     Indication: Non-small cell lung cancer
     Dosage: 340 MILLIGRAM, UNK, FREQUENCY: Q4WK
     Route: 065
  18. CARBOPLATIN [Suspect]
     Active Substance: CARBOPLATIN
     Dosage: 340 MILLIGRAM, UNK, FREQUENCY: Q4WK
     Route: 065
  19. CARBOPLATIN [Suspect]
     Active Substance: CARBOPLATIN
     Dosage: 340 MILLIGRAM, UNK, FREQUENCY: Q4WK
     Route: 065
  20. CARBOPLATIN [Suspect]
     Active Substance: CARBOPLATIN
     Dosage: 340 MILLIGRAM, UNK, FREQUENCY: Q4WK
     Route: 065
  21. ABRAXANE [Concomitant]
     Active Substance: PACLITAXEL
     Indication: Non-small cell lung cancer
     Dosage: 150 MILLIGRAM, UNK, FREQUENCY: Q4WK
     Route: 065
  22. ABRAXANE [Concomitant]
     Active Substance: PACLITAXEL
     Dosage: 150 MILLIGRAM, UNK, FREQUENCY: Q4WK
     Route: 065
  23. NITRENDIPINE [Concomitant]
     Active Substance: NITRENDIPINE
     Indication: Hypertension
     Dosage: 10 MILLIGRAM, QD
  24. NITRENDIPINE [Concomitant]
     Active Substance: NITRENDIPINE
     Dosage: 10 MILLIGRAM, QD
     Route: 048
  25. NITRENDIPINE [Concomitant]
     Active Substance: NITRENDIPINE
     Dosage: 10 MILLIGRAM, QD
  26. NITRENDIPINE [Concomitant]
     Active Substance: NITRENDIPINE
     Dosage: 10 MILLIGRAM, QD
     Route: 048
  27. NITRENDIPINE [Concomitant]
     Active Substance: NITRENDIPINE
  28. NITRENDIPINE [Concomitant]
     Active Substance: NITRENDIPINE
     Route: 048
  29. NITRENDIPINE [Concomitant]
     Active Substance: NITRENDIPINE
  30. NITRENDIPINE [Concomitant]
     Active Substance: NITRENDIPINE
     Route: 048
  31. FEBUXOSTAT [Concomitant]
     Active Substance: FEBUXOSTAT
     Indication: Gout
     Dosage: 20 MILLIGRAM, QD
  32. FEBUXOSTAT [Concomitant]
     Active Substance: FEBUXOSTAT
     Dosage: 20 MILLIGRAM, QD
     Route: 048
  33. FEBUXOSTAT [Concomitant]
     Active Substance: FEBUXOSTAT
     Dosage: 20 MILLIGRAM, QD
  34. FEBUXOSTAT [Concomitant]
     Active Substance: FEBUXOSTAT
     Dosage: 20 MILLIGRAM, QD
     Route: 048
  35. FEBUXOSTAT [Concomitant]
     Active Substance: FEBUXOSTAT
  36. FEBUXOSTAT [Concomitant]
     Active Substance: FEBUXOSTAT
     Route: 048
  37. FEBUXOSTAT [Concomitant]
     Active Substance: FEBUXOSTAT
  38. FEBUXOSTAT [Concomitant]
     Active Substance: FEBUXOSTAT
     Route: 048
  39. MAGNESIUM OXIDE [Concomitant]
     Active Substance: MAGNESIUM OXIDE
     Indication: Constipation
     Dosage: AS REQUIRED
  40. MAGNESIUM OXIDE [Concomitant]
     Active Substance: MAGNESIUM OXIDE
     Dosage: AS REQUIRED
     Route: 048
  41. MAGNESIUM OXIDE [Concomitant]
     Active Substance: MAGNESIUM OXIDE
     Dosage: AS REQUIRED
  42. MAGNESIUM OXIDE [Concomitant]
     Active Substance: MAGNESIUM OXIDE
     Dosage: AS REQUIRED
     Route: 048
  43. SPIRIVA [Concomitant]
     Active Substance: TIOTROPIUM BROMIDE MONOHYDRATE
     Indication: Chronic obstructive pulmonary disease
     Dosage: 2 DOSAGE FORM, QD
     Route: 055
  44. SPIRIVA [Concomitant]
     Active Substance: TIOTROPIUM BROMIDE MONOHYDRATE
     Dosage: 2 DOSAGE FORM, QD
  45. ESOMEPRAZOLE [Concomitant]
     Active Substance: ESOMEPRAZOLE
     Indication: Gastrooesophageal reflux disease
     Dosage: 20 MILLIGRAM, QD
  46. ESOMEPRAZOLE [Concomitant]
     Active Substance: ESOMEPRAZOLE
     Dosage: 20 MILLIGRAM, QD
     Route: 048
  47. ESOMEPRAZOLE [Concomitant]
     Active Substance: ESOMEPRAZOLE
     Dosage: 20 MILLIGRAM, QD
  48. ESOMEPRAZOLE [Concomitant]
     Active Substance: ESOMEPRAZOLE
     Dosage: 20 MILLIGRAM, QD
     Route: 048
  49. SULFAMETHOXAZOLE\TRIMETHOPRIM [Concomitant]
     Active Substance: SULFAMETHOXAZOLE\TRIMETHOPRIM
     Indication: Pneumocystis jirovecii pneumonia
     Dosage: 3 DOSAGE FORM DAYS/WEEK
  50. SULFAMETHOXAZOLE\TRIMETHOPRIM [Concomitant]
     Active Substance: SULFAMETHOXAZOLE\TRIMETHOPRIM
     Dosage: 3 DOSAGE FORM DAYS/WEEK
     Route: 048
  51. SULFAMETHOXAZOLE\TRIMETHOPRIM [Concomitant]
     Active Substance: SULFAMETHOXAZOLE\TRIMETHOPRIM
     Dosage: 3 DOSAGE FORM DAYS/WEEK
  52. SULFAMETHOXAZOLE\TRIMETHOPRIM [Concomitant]
     Active Substance: SULFAMETHOXAZOLE\TRIMETHOPRIM
     Dosage: 3 DOSAGE FORM DAYS/WEEK
     Route: 048
  53. BONALON [Concomitant]
     Active Substance: ALENDRONATE SODIUM
     Indication: Osteoporosis prophylaxis
     Dosage: ONCE A WEEK
     Route: 048
  54. BONALON [Concomitant]
     Active Substance: ALENDRONATE SODIUM
     Dosage: ONCE A WEEK
  55. JANUVIA [Concomitant]
     Active Substance: SITAGLIPTIN PHOSPHATE
     Indication: Steroid diabetes
     Dosage: 50 MILLIGRAM, QD
  56. JANUVIA [Concomitant]
     Active Substance: SITAGLIPTIN PHOSPHATE
     Dosage: 50 MILLIGRAM, QD
     Route: 048
  57. JANUVIA [Concomitant]
     Active Substance: SITAGLIPTIN PHOSPHATE
     Dosage: 50 MILLIGRAM, QD
  58. JANUVIA [Concomitant]
     Active Substance: SITAGLIPTIN PHOSPHATE
     Dosage: 50 MILLIGRAM, QD
     Route: 048

REACTIONS (4)
  - Hiccups [Recovered/Resolved]
  - Pulmonary embolism [Recovering/Resolving]
  - Interstitial lung disease [Recovering/Resolving]
  - Off label use [Unknown]
